FAERS Safety Report 4273323-7 (Version None)
Quarter: 2004Q1

REPORT INFORMATION
  Report Type: 
  Country: None (occurrence: None)
  Receive Date: 20040119
  Receipt Date: 20031106
  Transmission Date: 20041129
  Serious: Yes (Other)
  Sender: FDA-Public Use
  Company Number: 200313333EU

PATIENT
  Age: 61 Year
  Sex: Female

DRUGS (6)
  1. ARAVA [Suspect]
     Indication: RHEUMATOID ARTHRITIS
     Route: 048
     Dates: start: 20021024
  2. VIOXX [Suspect]
     Indication: RHEUMATOID ARTHRITIS
     Route: 048
     Dates: start: 20010926
  3. ASPIRIN [Suspect]
     Indication: CORONARY ARTERY DISEASE
     Route: 048
     Dates: start: 20021114
  4. COVERSUM [Concomitant]
     Indication: CORONARY ARTERY DISEASE
     Route: 048
     Dates: start: 20030314
  5. TOREM [Concomitant]
     Route: 048
     Dates: start: 20030314
  6. MEVALOTIN [Concomitant]
     Route: 048
     Dates: start: 20030314

REACTIONS (11)
  - ANAEMIA [None]
  - ATROPHY [None]
  - CROHN'S DISEASE [None]
  - DEFAECATION URGENCY [None]
  - DUODENAL ULCER [None]
  - GASTROINTESTINAL DISORDER [None]
  - GASTROINTESTINAL ULCER [None]
  - LARGE INTESTINAL ULCER [None]
  - OESOPHAGEAL ULCER [None]
  - PYREXIA [None]
  - REFLUX OESOPHAGITIS [None]
